FAERS Safety Report 25260577 (Version 2)
Quarter: 2025Q2

REPORT INFORMATION
  Report Type: Spontaneous
  Country: AU (occurrence: AU)
  Receive Date: 20250501
  Receipt Date: 20250514
  Transmission Date: 20250716
  Serious: Yes (Other)
  Sender: NOVO NORDISK
  Company Number: AU-NOVOPROD-1406050

PATIENT
  Sex: Male

DRUGS (2)
  1. INSULIN ASPART [Suspect]
     Active Substance: INSULIN ASPART
     Indication: Blood glucose abnormal
  2. INSULIN ASPART [Suspect]
     Active Substance: INSULIN ASPART

REACTIONS (4)
  - Syncope [Unknown]
  - Face injury [Unknown]
  - Blood glucose increased [Unknown]
  - Drug ineffective [Unknown]
